FAERS Safety Report 19922647 (Version 1)
Quarter: 2021Q4

REPORT INFORMATION
  Report Type: Spontaneous
  Country: US (occurrence: US)
  Receive Date: 20211005
  Receipt Date: 20211005
  Transmission Date: 20220303
  Serious: No
  Sender: FDA-Public Use
  Company Number: None

PATIENT
  Age: 25 Month
  Sex: Female

DRUGS (1)
  1. COPPERTONE PURE AND SIMPLE BABY SPF 50 (ZINC OXIDE) [Suspect]
     Active Substance: ZINC OXIDE
     Indication: Prophylaxis against solar radiation
     Dates: start: 20210615, end: 20210930

REACTIONS (3)
  - Rash [None]
  - Skin abrasion [None]
  - Recalled product administered [None]

NARRATIVE: CASE EVENT DATE: 20210901
